FAERS Safety Report 23504951 (Version 1)
Quarter: 2024Q1

REPORT INFORMATION
  Report Type: Spontaneous
  Country: GB (occurrence: GB)
  Receive Date: 20240209
  Receipt Date: 20240209
  Transmission Date: 20240409
  Serious: No
  Sender: FDA-Public Use
  Company Number: None

PATIENT
  Age: 38 Year
  Sex: Male
  Weight: 79 kg

DRUGS (4)
  1. GABAPENTIN [Suspect]
     Active Substance: GABAPENTIN
     Indication: Product used for unknown indication
     Dosage: 100 MILLIGRAM, TID CAPSULE (ONE TO BE TAKEN THREE TIMES A DAY)
     Route: 065
     Dates: start: 20230222, end: 20230227
  2. GABAPENTIN [Suspect]
     Active Substance: GABAPENTIN
     Dosage: 100 MG (1 THEN 2 CAPS X1 THEN X2 DAILY ON DAY 1 AND 2 RESPECTIVELY. THEN 3 CAPS 1 WEEK. THEN 2 CAPS
     Route: 065
     Dates: start: 20230221, end: 20230228
  3. CETIRIZINE [Concomitant]
     Active Substance: CETIRIZINE HYDROCHLORIDE
     Indication: Adverse drug reaction
     Dosage: UNK, QD (ONE TO BE TAKEN EACH DAY)
     Route: 065
     Dates: start: 20230228
  4. DULOXETINE [Concomitant]
     Active Substance: DULOXETINE
     Indication: Peripheral nerve lesion
     Dosage: UNK, QD (ONE TO BE TAKEN EACH DAY-BOOK FOR A BLOOD PRESSURE CHECK 2 WEEKS AFTER STARTING) GASTRO-RES
     Route: 065
     Dates: start: 20230228

REACTIONS (1)
  - Rash [Recovering/Resolving]

NARRATIVE: CASE EVENT DATE: 20230225
